FAERS Safety Report 23326348 (Version 2)
Quarter: 2024Q1

REPORT INFORMATION
  Report Type: Spontaneous
  Country: US (occurrence: US)
  Receive Date: 20231221
  Receipt Date: 20240118
  Transmission Date: 20240410
  Serious: No
  Sender: FDA-Public Use
  Company Number: US-PFIZER INC-202300441700

PATIENT
  Age: 76 Year
  Sex: Female
  Weight: 57.61 kg

DRUGS (1)
  1. PREMARIN [Suspect]
     Active Substance: ESTROGENS, CONJUGATED
     Indication: Vulvovaginal dryness
     Dosage: APPLY 1 GRAM VAGINALLY AND ADDITIONAL TO INTER LABIA DIGITALLY NIGHTLY
     Dates: start: 20231205

REACTIONS (6)
  - Feeling abnormal [Unknown]
  - Nausea [Unknown]
  - Pruritus [Unknown]
  - Dysmenorrhoea [Unknown]
  - Discomfort [Unknown]
  - Incorrect dose administered [Unknown]

NARRATIVE: CASE EVENT DATE: 20231201
